FAERS Safety Report 7774856-9 (Version None)
Quarter: 2011Q3

REPORT INFORMATION
  Report Type: 
  Country: None (occurrence: None)
  Receive Date: 20110923
  Receipt Date: 20110920
  Transmission Date: 20111222
  Serious: Yes (Other)
  Sender: FDA-Public Use
  Company Number: CA-ROXANE LABORATORIES, INC.-2011-RO-01317RO

PATIENT
  Age: 30 Year
  Sex: Female

DRUGS (13)
  1. CYCLOPHOSPHAMIDE [Suspect]
     Indication: BREAST CANCER
  2. ANASTROZOLE [Suspect]
     Indication: BREAST CANCER METASTATIC
  3. DOCETAXEL [Suspect]
     Indication: BREAST CANCER METASTATIC
     Dates: start: 20040101
  4. LETROZOLE [Suspect]
     Indication: BREAST CANCER METASTATIC
  5. FLUOROURACIL [Suspect]
     Indication: BREAST CANCER RECURRENT
  6. DOCETAXEL [Suspect]
     Indication: DISEASE PROGRESSION
  7. CYCLOPHOSPHAMIDE [Suspect]
     Indication: BREAST CANCER RECURRENT
  8. EXEMESTANE [Suspect]
     Indication: BREAST CANCER METASTATIC
  9. CAPECITABINE [Suspect]
     Indication: BREAST CANCER METASTATIC
     Dates: start: 20060101
  10. TAMOXIFEN CITRATE [Suspect]
     Indication: BREAST CANCER RECURRENT
  11. FLUOROURACIL [Suspect]
     Indication: BREAST CANCER
  12. METHOTREXATE [Suspect]
     Indication: BREAST CANCER
  13. EPIRUBICIN [Suspect]
     Indication: BREAST CANCER RECURRENT

REACTIONS (3)
  - BREAST CANCER RECURRENT [None]
  - DISEASE PROGRESSION [None]
  - BREAST CANCER METASTATIC [None]
